FAERS Safety Report 5465589-2 (Version None)
Quarter: 2007Q3

REPORT INFORMATION
  Report Type: 
  Country: None (occurrence: None)
  Receive Date: 20070919
  Receipt Date: 20070907
  Transmission Date: 20080115
  Serious: Yes (Life-Threatening)
  Sender: FDA-Public Use
  Company Number: 2007AP000977

PATIENT
  Age: 52 Year
  Sex: Male

DRUGS (3)
  1. AMLODIPINE BESYLATE [Suspect]
     Dosage: 325 MG
  2. ATENOLOL [Suspect]
     Dosage: 2000 MG
  3. LOSARTAN POTASSIUM [Suspect]
     Dosage: 2000 MG

REACTIONS (3)
  - ATRIOVENTRICULAR BLOCK FIRST DEGREE [None]
  - HYPOTENSION [None]
  - MULTIPLE DRUG OVERDOSE [None]
